FAERS Safety Report 22324544 (Version 2)
Quarter: 2023Q2

REPORT INFORMATION
  Report Type: Spontaneous
  Country: US (occurrence: US)
  Receive Date: 20230516
  Receipt Date: 20230523
  Transmission Date: 20230721
  Serious: Yes (Other)
  Sender: FDA-Public Use
  Company Number: US-SANOFI-01614897

PATIENT
  Age: 35 Year
  Sex: Male

DRUGS (5)
  1. ELOCTATE [Suspect]
     Active Substance: EFMOROCTOCOG ALFA
     Indication: Haemophilia
     Dosage: 3500 U, PRN
     Route: 042
     Dates: start: 20221011
  2. ELOCTATE [Suspect]
     Active Substance: EFMOROCTOCOG ALFA
     Indication: Haemophilia
     Dosage: 3500 U, PRN
     Route: 042
     Dates: start: 20221011
  3. ELOCTATE [Suspect]
     Active Substance: EFMOROCTOCOG ALFA
     Indication: Factor VIII deficiency
     Dosage: UNK
     Route: 065
     Dates: start: 20230511
  4. ELOCTATE [Suspect]
     Active Substance: EFMOROCTOCOG ALFA
     Indication: Factor VIII deficiency
     Dosage: UNK
     Route: 065
     Dates: start: 20230511
  5. HEMLIBRA [Concomitant]
     Active Substance: EMICIZUMAB-KXWH
     Indication: Haemophilia
     Dosage: UNK

REACTIONS (1)
  - Haemorrhage [Not Recovered/Not Resolved]

NARRATIVE: CASE EVENT DATE: 20230511
